FAERS Safety Report 19233683 (Version 2)
Quarter: 2021Q2

REPORT INFORMATION
  Report Type: Spontaneous
  Country: RO (occurrence: RO)
  Receive Date: 20210507
  Receipt Date: 20210625
  Transmission Date: 20210717
  Serious: Yes (Other)
  Sender: FDA-Public Use
  Company Number: RO-AMGEN-ROUSP2021064826

PATIENT
  Age: 53 Year
  Sex: Male

DRUGS (5)
  1. VECTIBIX [Suspect]
     Active Substance: PANITUMUMAB
     Indication: COLORECTAL CANCER METASTATIC
     Dosage: UNK, CYCLICAL
     Route: 065
     Dates: start: 201805, end: 201810
  2. OXALIPLATIN. [Concomitant]
     Active Substance: OXALIPLATIN
     Indication: COLORECTAL CANCER METASTATIC
     Dosage: UNK UNK, CYCLICAL
     Dates: start: 201805
  3. 5 FU [Concomitant]
     Active Substance: FLUOROURACIL
     Indication: COLORECTAL CANCER METASTATIC
     Dosage: UNK UNK, CYCLICAL
     Dates: start: 201805
  4. BEVACIZUMAB. [Suspect]
     Active Substance: BEVACIZUMAB
     Indication: PRODUCT USED FOR UNKNOWN INDICATION
     Dosage: UNK
     Route: 065
  5. FOLINIC ACID [Concomitant]
     Active Substance: LEUCOVORIN
     Indication: COLORECTAL CANCER METASTATIC
     Dosage: UNK UNK, CYCLICAL
     Dates: start: 201805

REACTIONS (22)
  - Anaemia [Unknown]
  - Decreased appetite [Recovering/Resolving]
  - Thrombocytopenia [Unknown]
  - Leukopenia [Unknown]
  - Rash [Unknown]
  - Acne [Unknown]
  - Weight decreased [Unknown]
  - Nausea [Unknown]
  - Asthenia [Recovering/Resolving]
  - Vomiting [Unknown]
  - Hepatic cytolysis [Unknown]
  - Neutropenia [Unknown]
  - Therapy partial responder [Unknown]
  - Paronychia [Unknown]
  - Hair growth abnormal [Unknown]
  - Pruritus [Unknown]
  - Erythema [Unknown]
  - Colorectal cancer metastatic [Recovering/Resolving]
  - Diarrhoea [Unknown]
  - Adverse event [Recovered/Resolved]
  - Trichomegaly [Unknown]
  - Hypomagnesaemia [Unknown]

NARRATIVE: CASE EVENT DATE: 2018
